FAERS Safety Report 5949004-8 (Version None)
Quarter: 2008Q4

REPORT INFORMATION
  Report Type: 
  Country: None (occurrence: None)
  Receive Date: 20081111
  Receipt Date: 20081104
  Transmission Date: 20090506
  Serious: Yes (Hospitalization)
  Sender: FDA-Public Use
  Company Number: IT-ELI_LILLY_AND_COMPANY-IT200805001544

PATIENT
  Sex: Female

DRUGS (9)
  1. BYETTA [Suspect]
     Indication: TYPE 2 DIABETES MELLITUS
     Dosage: 5 UG, 2/D
     Route: 058
     Dates: start: 20080402, end: 20080502
  2. METFORMIN HCL [Concomitant]
     Indication: TYPE 2 DIABETES MELLITUS
     Dosage: 500 MG, UNKNOWN
     Route: 048
     Dates: start: 20080327, end: 20080509
  3. PANTORC [Concomitant]
     Dosage: 20 MG, UNK
     Route: 048
     Dates: start: 20080327, end: 20080509
  4. TRIATEC [Concomitant]
     Dosage: 5 MG, UNK
     Route: 048
     Dates: start: 20080327, end: 20080509
  5. TENORMIN [Concomitant]
     Dosage: 100 MG, UNK
     Route: 048
     Dates: start: 20010131, end: 20080509
  6. ASPIRIN [Concomitant]
     Dosage: 100 MG, UNK
     Route: 048
     Dates: start: 20010131, end: 20080509
  7. TOTALIP [Concomitant]
     Dosage: 20 MG, UNK
     Route: 048
     Dates: start: 20010131, end: 20080509
  8. LYRICA [Concomitant]
     Dosage: 75 MG, UNK
     Route: 048
     Dates: start: 20080315, end: 20080509
  9. ANTIHYPERTENSIVES [Concomitant]
     Indication: ISCHAEMIC CARDIOMYOPATHY
     Dosage: UNK, UNKNOWN
     Route: 065

REACTIONS (3)
  - GASTRITIS [None]
  - GASTROOESOPHAGEAL REFLUX DISEASE [None]
  - PANCREATITIS ACUTE [None]
